FAERS Safety Report 13754697 (Version 4)
Quarter: 2017Q3

REPORT INFORMATION
  Report Type: Spontaneous
  Country: JP (occurrence: JP)
  Receive Date: 20170714
  Receipt Date: 20170828
  Transmission Date: 20171127
  Serious: Yes (Death, Other)
  Sender: FDA-Public Use
  Company Number: JP-009507513-1707JPN000232J

PATIENT
  Age: 69 Year
  Sex: Male
  Weight: 49 kg

DRUGS (5)
  1. GLIMEPIRIDE. [Concomitant]
     Active Substance: GLIMEPIRIDE
     Dosage: 1.0 MG, QD
     Route: 048
  2. LOSARTAN K [Concomitant]
     Active Substance: LOSARTAN POTASSIUM
     Dosage: 50 MG, QD
     Route: 048
  3. JANUVIA [Concomitant]
     Active Substance: SITAGLIPTIN PHOSPHATE
     Dosage: 100 MG, QD
     Route: 048
  4. KEYTRUDA [Suspect]
     Active Substance: PEMBROLIZUMAB
     Indication: LUNG ADENOCARCINOMA
     Dosage: 200 MG, Q3W
     Route: 041
     Dates: start: 20170523, end: 20170523
  5. PREDONINE [Concomitant]
     Active Substance: PREDNISOLONE
     Indication: LUNG ADENOCARCINOMA
     Dosage: 20 MG, QD
     Dates: start: 20170208

REACTIONS (1)
  - Malignant neoplasm progression [Fatal]

NARRATIVE: CASE EVENT DATE: 20170526
